FAERS Safety Report 6887015-9 (Version None)
Quarter: 2010Q3

REPORT INFORMATION
  Report Type: 
  Country: None (occurrence: None)
  Receive Date: 20100708
  Receipt Date: 20100428
  Transmission Date: 20110219
  Serious: Yes (Other)
  Sender: FDA-Public Use
  Company Number: 2010030652

PATIENT
  Age: 34 Year
  Sex: Female
  Weight: 65.8 kg

DRUGS (3)
  1. CHANTIX [Suspect]
     Indication: SMOKING CESSATION THERAPY
     Dosage: 0.5 MG, 1X/DAY; 1 MG, 2X/DAY
     Dates: end: 20100304
  2. CHANTIX [Suspect]
     Indication: SMOKING CESSATION THERAPY
     Dosage: 0.5 MG, 1X/DAY; 1 MG, 2X/DAY
     Dates: start: 20100211
  3. YAZ [Concomitant]

REACTIONS (2)
  - AGITATION [None]
  - MOOD ALTERED [None]
